FAERS Safety Report 13615287 (Version 6)
Quarter: 2018Q1

REPORT INFORMATION
  Report Type: Spontaneous
  Country: US (occurrence: US)
  Receive Date: 20170606
  Receipt Date: 20180130
  Transmission Date: 20180508
  Serious: No
  Sender: FDA-Public Use
  Company Number: PHEH2017US016963

PATIENT
  Sex: Female

DRUGS (2)
  1. ZOFRAN [Suspect]
     Active Substance: ONDANSETRON HYDROCHLORIDE
     Indication: PRODUCT USED FOR UNKNOWN INDICATION
     Dosage: 01 DF, TID
     Route: 048
  2. ONDANSETRON [Suspect]
     Active Substance: ONDANSETRON
     Indication: PRODUCT USED FOR UNKNOWN INDICATION
     Dosage: 8 MG, PRN
     Route: 065
     Dates: start: 20130313, end: 201304

REACTIONS (9)
  - Pain [Unknown]
  - Maternal exposure during pregnancy [Unknown]
  - Anaemia [Unknown]
  - Prolonged rupture of membranes [Unknown]
  - Postpartum haemorrhage [Unknown]
  - Product use issue [Unknown]
  - Injury [Unknown]
  - Emotional distress [Unknown]
  - Anxiety [Unknown]
